FAERS Safety Report 8144976-8 (Version None)
Quarter: 2012Q1

REPORT INFORMATION
  Report Type: 
  Country: None (occurrence: None)
  Receive Date: 20120217
  Receipt Date: 20120210
  Transmission Date: 20120608
  Serious: Yes (Hospitalization, Other)
  Sender: FDA-Public Use
  Company Number: US-MERCK-01081321

PATIENT
  Age: 62 Year
  Sex: Female
  Weight: 43 kg

DRUGS (9)
  1. CALCIUM (UNSPECIFIED) [Concomitant]
     Indication: OSTEOPOROSIS
     Route: 065
  2. FOSAMAX [Suspect]
     Indication: OSTEOPOROSIS
     Route: 048
     Dates: start: 19990401, end: 20040301
  3. FOSAMAX [Suspect]
     Route: 048
     Dates: end: 20090901
  4. VITAMIN D (UNSPECIFIED) [Concomitant]
     Indication: OSTEOPOROSIS
     Route: 065
  5. PREVACID [Concomitant]
     Indication: DYSPEPSIA
     Route: 065
  6. BAYCOL [Concomitant]
     Indication: HYPERCHOLESTEROLAEMIA
     Route: 065
  7. LEVOXYL [Concomitant]
     Indication: HYPOTHYROIDISM
     Route: 065
  8. FOSAMAX [Suspect]
     Route: 048
     Dates: end: 19991101
  9. BONIVA [Suspect]
     Indication: OSTEOPOROSIS
     Route: 065
     Dates: start: 20060601, end: 20090501

REACTIONS (37)
  - ARTHRITIS [None]
  - LUNG NEOPLASM [None]
  - OSTEOARTHRITIS [None]
  - ARTHRALGIA [None]
  - CONTUSION [None]
  - HYPOAESTHESIA [None]
  - GASTROOESOPHAGEAL REFLUX DISEASE [None]
  - EPIGASTRIC DISCOMFORT [None]
  - CARPAL TUNNEL SYNDROME [None]
  - HYPOTHYROIDISM [None]
  - OSTEOPENIA [None]
  - CHRONIC OBSTRUCTIVE PULMONARY DISEASE [None]
  - BACK PAIN [None]
  - DENTAL CARIES [None]
  - DYSPNOEA [None]
  - TOOTH DISORDER [None]
  - SCOLIOSIS [None]
  - BURSITIS [None]
  - BARRETT'S OESOPHAGUS [None]
  - BRONCHIOLOALVEOLAR CARCINOMA [None]
  - ABSCESS [None]
  - CORONARY ARTERY DISEASE [None]
  - TOOTHACHE [None]
  - CHEST PAIN [None]
  - ACNE [None]
  - OSTEOMYELITIS [None]
  - OSTEONECROSIS OF JAW [None]
  - ANAPHYLACTIC REACTION [None]
  - ABDOMINAL HERNIA [None]
  - LUMBAR SPINAL STENOSIS [None]
  - IMPAIRED HEALING [None]
  - GASTROINTESTINAL DISORDER [None]
  - TOOTH INFECTION [None]
  - SQUAMOUS CELL CARCINOMA [None]
  - PERIODONTAL DISEASE [None]
  - CUBITAL TUNNEL SYNDROME [None]
  - CYSTITIS [None]
